APPROVED DRUG PRODUCT: DIPYRIDAMOLE
Active Ingredient: DIPYRIDAMOLE
Strength: 5MG/ML
Dosage Form/Route: INJECTABLE;INJECTION
Application: A074952 | Product #001
Applicant: DR REDDYS LABORATORIES LTD
Approved: Nov 26, 1997 | RLD: No | RS: No | Type: DISCN